FAERS Safety Report 18731581 (Version 2)
Quarter: 2021Q1

REPORT INFORMATION
  Report Type: Spontaneous
  Country: CO (occurrence: CO)
  Receive Date: 20210112
  Receipt Date: 20210120
  Transmission Date: 20210419
  Serious: Yes (Other)
  Sender: FDA-Public Use
  Company Number: NVSC2021CO004645

PATIENT
  Age: 8 Decade
  Sex: Female

DRUGS (2)
  1. ANASTROZOLE. [Suspect]
     Active Substance: ANASTROZOLE
     Indication: AROMATASE INHIBITION THERAPY
  2. ANASTROZOLE. [Suspect]
     Active Substance: ANASTROZOLE
     Indication: NEUROENDOCRINE BREAST TUMOUR
     Dosage: 1 MG, QD
     Route: 065

REACTIONS (2)
  - Malignant neoplasm progression [Unknown]
  - Neuroendocrine breast tumour [Unknown]
